FAERS Safety Report 16423767 (Version 1)
Quarter: 2019Q2

REPORT INFORMATION
  Report Type: Spontaneous
  Country: US (occurrence: US)
  Receive Date: 20190613
  Receipt Date: 20190613
  Transmission Date: 20190711
  Serious: No
  Sender: FDA-Public Use
  Company Number: US-GLENMARK PHARMACEUTICALS-2019GMK040148

PATIENT

DRUGS (1)
  1. ATOMOXETINE CAPSULES USP [25MG] [Suspect]
     Active Substance: ATOMOXETINE HYDROCHLORIDE
     Indication: ATTENTION DEFICIT/HYPERACTIVITY DISORDER
     Dosage: 25 MG, OD
     Route: 048

REACTIONS (2)
  - Therapeutic product effect incomplete [Unknown]
  - Abdominal pain upper [Unknown]
